FAERS Safety Report 14747571 (Version 14)
Quarter: 2019Q2

REPORT INFORMATION
  Report Type: Report from Study
  Country: US (occurrence: US)
  Receive Date: 20180411
  Receipt Date: 20190613
  Transmission Date: 20190711
  Serious: Yes (Hospitalization)
  Sender: FDA-Public Use
  Company Number: US-ACTELION-A-US2015-121661

PATIENT
  Age: 56 Year
  Sex: Female
  Weight: 78.91 kg

DRUGS (6)
  1. COUMADIN [Concomitant]
     Active Substance: WARFARIN SODIUM
  2. VELETRI [Suspect]
     Active Substance: EPOPROSTENOL
     Dosage: 37.7 NG/KG, PER MIN
     Route: 042
     Dates: start: 20141217
  3. VELETRI [Suspect]
     Active Substance: EPOPROSTENOL
     Dosage: UNK
     Route: 042
  4. FLOLAN [Concomitant]
     Active Substance: EPOPROSTENOL SODIUM
  5. VELETRI [Suspect]
     Active Substance: EPOPROSTENOL
     Dosage: 37.5 NG/KG, PER MIN
     Route: 042
  6. VELETRI [Suspect]
     Active Substance: EPOPROSTENOL
     Indication: PULMONARY ARTERIAL HYPERTENSION
     Dosage: 37.5 NG/KG, PER MIN
     Route: 042

REACTIONS (26)
  - Breast mass [Unknown]
  - Influenza [Unknown]
  - Blood disorder [Unknown]
  - Pain in jaw [Unknown]
  - Dizziness postural [Unknown]
  - Lung adenocarcinoma stage IV [Not Recovered/Not Resolved]
  - Headache [Unknown]
  - Weight decreased [Unknown]
  - Nasopharyngitis [Unknown]
  - Rash [Unknown]
  - Skin irritation [Unknown]
  - Anxiety [Unknown]
  - Febrile neutropenia [Unknown]
  - Tonsillitis [Unknown]
  - Flushing [Unknown]
  - Dyspnoea exertional [Unknown]
  - Dizziness [Unknown]
  - Platelet disorder [Unknown]
  - Hypersensitivity [Unknown]
  - Pain in extremity [Unknown]
  - Rash macular [Unknown]
  - Nausea [Unknown]
  - Malaise [Unknown]
  - Atrial fibrillation [Unknown]
  - Haemoglobin decreased [Unknown]
  - Cardiac flutter [Unknown]

NARRATIVE: CASE EVENT DATE: 20180403
